FAERS Safety Report 26091373 (Version 1)
Quarter: 2025Q4

REPORT INFORMATION
  Report Type: Spontaneous
  Country: US (occurrence: None)
  Receive Date: 20251125
  Receipt Date: 20251125
  Transmission Date: 20260118
  Serious: Yes (Other)
  Sender: FDA-CTU
  Company Number: None

PATIENT
  Age: 35 Year
  Sex: Female

DRUGS (4)
  1. AMJEVITA [Suspect]
     Active Substance: ADALIMUMAB-ATTO
     Indication: Psoriatic arthropathy
     Dosage: UNKNOWN
  2. ENBREL [Suspect]
     Active Substance: ETANERCEPT
  3. CIMZIA [Suspect]
     Active Substance: CERTOLIZUMAB PEGOL
  4. SIMPONI ARIA [Suspect]
     Active Substance: GOLIMUMAB

REACTIONS (4)
  - Off label use [None]
  - Drug hypersensitivity [None]
  - Drug specific antibody [None]
  - Drug effect less than expected [None]
